FAERS Safety Report 10782796 (Version 1)
Quarter: 2015Q1

REPORT INFORMATION
  Report Type: Spontaneous
  Country: DK (occurrence: CA)
  Receive Date: 20150210
  Receipt Date: 20150210
  Transmission Date: 20150721
  Serious: Yes (Life-Threatening, Hospitalization)
  Sender: FDA-Public Use
  Company Number: CA-FRI-1000071387

PATIENT
  Age: 61 Year
  Sex: Female
  Weight: 77 kg

DRUGS (7)
  1. ESCITALOPRAM [Suspect]
     Active Substance: ESCITALOPRAM OXALATE
     Indication: GENERALISED ANXIETY DISORDER
     Dosage: 10 MG
     Route: 048
     Dates: start: 20130410, end: 20130919
  2. ESCITALOPRAM [Suspect]
     Active Substance: ESCITALOPRAM OXALATE
     Indication: DEPRESSION
     Dosage: 20 MG
     Route: 048
     Dates: start: 20130920, end: 20131015
  3. REMERON [Suspect]
     Active Substance: MIRTAZAPINE
     Indication: GENERALISED ANXIETY DISORDER
     Dosage: 30 MG
     Route: 048
     Dates: start: 20131018, end: 20140513
  4. REMERON [Suspect]
     Active Substance: MIRTAZAPINE
     Indication: DEPRESSION
     Dosage: 45 MG
     Route: 048
     Dates: start: 20140514, end: 20140531
  5. REMERON [Suspect]
     Active Substance: MIRTAZAPINE
     Dosage: 15 MG
     Route: 048
     Dates: start: 20130828, end: 20131017
  6. ESCITALOPRAM [Suspect]
     Active Substance: ESCITALOPRAM OXALATE
     Dosage: OVERDOSE: ESCITALOPRAM 30 MG DAILY
     Route: 048
     Dates: start: 20131016, end: 20140531
  7. ABILIFY [Concomitant]
     Active Substance: ARIPIPRAZOLE
     Dosage: 5 MG

REACTIONS (3)
  - Drug interaction [Recovered/Resolved]
  - Prescribed overdose [Recovered/Resolved]
  - Pulmonary embolism [Recovered/Resolved]

NARRATIVE: CASE EVENT DATE: 20131016
